FAERS Safety Report 8625486-8 (Version None)
Quarter: 2012Q3

REPORT INFORMATION
  Report Type: 
  Country: None (occurrence: None)
  Receive Date: 20120827
  Receipt Date: 20120817
  Transmission Date: 20120928
  Serious: Yes (Life-Threatening, Hospitalization)
  Sender: FDA-Public Use
  Company Number: ES-BAYER-2011-008323

PATIENT
  Age: 57 Year
  Sex: Male

DRUGS (17)
  1. CERTICAN [Concomitant]
     Dosage: DAILY DOSE 1.5 MG
     Dates: start: 20100625
  2. DEZACOR [Concomitant]
     Dosage: DAILY DOSE 12 MG
     Dates: start: 20091117, end: 20100727
  3. FLUCONAZOLE [Concomitant]
     Dosage: DAILY DOSE 200 MG
     Dates: start: 20100624
  4. PROGRAF [Concomitant]
     Dosage: DAILY DOSE 2 MG
     Dates: start: 20091117
  5. DEZACOR [Concomitant]
     Dosage: DAILY DOSE 9 MG
  6. LANTUS [Concomitant]
     Dosage: DAILY DOSE 16 U
  7. ALPRAZOLAM [Concomitant]
     Dosage: DAILY DOSE .5 MG
     Dates: start: 20100728
  8. MYCOPHENOLATE MOFETIL (CELLCEPT) [Concomitant]
     Dosage: DAILY DOSE 1000 MG
  9. PANTOPRAZOLE [Concomitant]
     Dosage: DAILY DOSE 40 MG
     Dates: start: 20091117, end: 20100727
  10. IBUPROFEN [Concomitant]
     Dosage: DAILY DOSE 1800 MG
     Dates: start: 20100728
  11. OMEPRAZOLE [Concomitant]
     Dosage: DAILY DOSE 20 MG
     Dates: start: 20100728
  12. NEXAVAR [Suspect]
     Indication: HEPATIC NEOPLASM MALIGNANT
     Dosage: 800 MG, QD
     Route: 048
     Dates: start: 20100629, end: 20100709
  13. APIDRA [Concomitant]
     Dosage: UNK UNK, PRN
     Dates: start: 20091117
  14. LANTUS [Concomitant]
     Dosage: DAILY DOSE 34 U
     Dates: start: 20100105
  15. LANTUS [Concomitant]
     Dosage: DAILY DOSE 18 U
  16. MYCOPHENOLATE MOFETIL (CELLCEPT) [Concomitant]
     Dosage: DAILY DOSE 2000 MG
     Dates: start: 20091117
  17. ENOXAPARIN SODIUM [Concomitant]
     Dosage: DAILY DOSE 60 MG
     Dates: start: 20100624

REACTIONS (2)
  - CONVULSION [None]
  - CEREBRAL HAEMORRHAGE [None]
